FAERS Safety Report 18567661 (Version 2)
Quarter: 2023Q4

REPORT INFORMATION
  Report Type: Report from Study
  Country: CA (occurrence: CA)
  Receive Date: 20201202
  Receipt Date: 20231109
  Transmission Date: 20240110
  Serious: Yes (Other)
  Sender: FDA-Public Use
  Company Number: CA-JNJFOC-20201147785

PATIENT
  Age: 68 Year
  Sex: Male
  Weight: 96.3 kg

DRUGS (1)
  1. REMICADE [Suspect]
     Active Substance: INFLIXIMAB
     Indication: Crohn^s disease
     Dosage: EXPIRY DATE: 01-MAR-2026
     Route: 041
     Dates: start: 20151210, end: 20231106

REACTIONS (1)
  - Basal cell carcinoma [Unknown]
